FAERS Safety Report 5115346-1 (Version None)
Quarter: 2006Q3

REPORT INFORMATION
  Report Type: 
  Country: None (occurrence: None)
  Receive Date: 20060922
  Receipt Date: 20060914
  Transmission Date: 20061208
  Serious: Yes (Disabling)
  Sender: FDA-Public Use
  Company Number: 2006BH013398

PATIENT
  Age: 40 Year
  Sex: Male

DRUGS (1)
  1. HYDROCORTISONE 100MG (HYDROCORTISONE) [Suspect]
     Indication: DRUG USE FOR UNKNOWN INDICATION
     Dosage: 125 MG; ONCE; ED
     Route: 008

REACTIONS (2)
  - PAIN IN EXTREMITY [None]
  - PARAPLEGIA [None]
